FAERS Safety Report 25276763 (Version 1)
Quarter: 2025Q2

REPORT INFORMATION
  Report Type: Spontaneous
  Country: HU (occurrence: HU)
  Receive Date: 20250507
  Receipt Date: 20250507
  Transmission Date: 20250716
  Serious: Yes (Other)
  Sender: ROCHE
  Company Number: HU-ROCHE-10000272535

PATIENT

DRUGS (2)
  1. CELLCEPT [Suspect]
     Active Substance: MYCOPHENOLATE MOFETIL
     Indication: Product used for unknown indication
     Route: 065
  2. PREDNISONE [Concomitant]
     Active Substance: PREDNISONE

REACTIONS (7)
  - Dry eye [Unknown]
  - Rosacea [Unknown]
  - Arthralgia [Unknown]
  - Temperature intolerance [Unknown]
  - Raynaud^s phenomenon [Unknown]
  - Headache [Unknown]
  - Nasal dryness [Unknown]
